FAERS Safety Report 24314968 (Version 2)
Quarter: 2024Q4

REPORT INFORMATION
  Report Type: Report from Study
  Country: US (occurrence: US)
  Receive Date: 20240913
  Receipt Date: 20241119
  Transmission Date: 20250115
  Serious: Yes (Hospitalization)
  Sender: BEIGENE
  Company Number: US-BEIGENE-BGN-2024-014167

PATIENT

DRUGS (2)
  1. BRUKINSA [Suspect]
     Active Substance: ZANUBRUTINIB
     Indication: B-cell small lymphocytic lymphoma
     Dosage: 240 MILLIGRAM, DAILY
     Route: 048
     Dates: start: 20230817
  2. BRUKINSA [Suspect]
     Active Substance: ZANUBRUTINIB
     Dosage: 240 MILLIGRAM, DAILY
     Route: 048
     Dates: start: 20230817

REACTIONS (5)
  - Peripheral swelling [Unknown]
  - Drainage [Unknown]
  - Haemorrhage subcutaneous [Unknown]
  - Lymphoedema [Unknown]
  - Pain in extremity [Unknown]
